FAERS Safety Report 16822280 (Version 2)
Quarter: 2019Q4

REPORT INFORMATION
  Report Type: Spontaneous
  Country: US (occurrence: US)
  Receive Date: 20190918
  Receipt Date: 20191023
  Transmission Date: 20200122
  Serious: No
  Sender: FDA-Public Use
  Company Number: US-PFIZER INC-2019401369

PATIENT
  Age: 76 Year
  Sex: Male

DRUGS (1)
  1. TIGAN [Suspect]
     Active Substance: TRIMETHOBENZAMIDE HYDROCHLORIDE
     Dosage: UNK

REACTIONS (1)
  - Nausea [Recovered/Resolved]
